FAERS Safety Report 10012252 (Version 1)
Quarter: 2014Q1

REPORT INFORMATION
  Report Type: Spontaneous
  Country: US (occurrence: US)
  Receive Date: 20140314
  Receipt Date: 20140314
  Transmission Date: 20141002
  Serious: Yes (Other)
  Sender: FDA-Public Use
  Company Number: US-ELI_LILLY_AND_COMPANY-US201403002395

PATIENT
  Sex: Male

DRUGS (3)
  1. HUMALOG 50% LISPRO, 50% NPL [Suspect]
     Indication: TYPE 2 DIABETES MELLITUS
     Dosage: 50 U, TID
     Route: 065
     Dates: start: 1994
  2. HUMALOG 50% LISPRO, 50% NPL [Suspect]
     Dosage: UNK UNK, QD
     Route: 065
     Dates: start: 1994
  3. LANTUS [Concomitant]
     Dosage: 80 U, BID

REACTIONS (3)
  - Aneurysm [Unknown]
  - Blindness [Recovered/Resolved]
  - Visual impairment [Not Recovered/Not Resolved]
